FAERS Safety Report 6948360-1 (Version None)
Quarter: 2010Q3

REPORT INFORMATION
  Report Type: 
  Country: None (occurrence: None)
  Receive Date: 20100828
  Receipt Date: 20091118
  Transmission Date: 20110219
  Serious: No
  Sender: FDA-Public Use
  Company Number: US-ABBOTT-09P-163-0605622-00

PATIENT
  Sex: Female
  Weight: 57.204 kg

DRUGS (10)
  1. NIASPAN [Suspect]
     Indication: BLOOD CHOLESTEROL INCREASED
     Dates: start: 20090925, end: 20091024
  2. CALCIUM [Concomitant]
     Indication: PRODUCT USED FOR UNKNOWN INDICATION
  3. MAGNESIUM [Concomitant]
     Indication: PRODUCT USED FOR UNKNOWN INDICATION
  4. COENZYME Q10 [Concomitant]
     Indication: PRODUCT USED FOR UNKNOWN INDICATION
  5. QUERCETIN [Concomitant]
     Indication: HYPERSENSITIVITY
  6. QUERCETIN [Concomitant]
     Indication: IMMUNE SYSTEM DISORDER
  7. FIBER [Concomitant]
     Indication: PRODUCT USED FOR UNKNOWN INDICATION
     Dosage: PILLS
  8. MULTI-VITAMIN [Concomitant]
     Indication: PRODUCT USED FOR UNKNOWN INDICATION
  9. FISH OIL [Concomitant]
     Indication: PRODUCT USED FOR UNKNOWN INDICATION
  10. CHROMIUM PICOLINATE [Concomitant]
     Indication: HYPOGLYCAEMIA

REACTIONS (4)
  - ABDOMINAL PAIN UPPER [None]
  - FLUSHING [None]
  - PRURITUS [None]
  - RASH [None]
